FAERS Safety Report 18341035 (Version 1)
Quarter: 2020Q4

REPORT INFORMATION
  Report Type: Spontaneous
  Country: FR (occurrence: FR)
  Receive Date: 20201003
  Receipt Date: 20201003
  Transmission Date: 20210113
  Serious: Yes (Hospitalization)
  Sender: FDA-Public Use
  Company Number: FR-TEVA-2020-FR-1833423

PATIENT
  Age: 54 Year
  Sex: Male

DRUGS (2)
  1. TAGRISSO [Suspect]
     Active Substance: OSIMERTINIB
     Indication: LUNG ADENOCARCINOMA
     Dosage: 80MG
     Route: 048
     Dates: start: 20200225
  2. ERLOTINIB [Suspect]
     Active Substance: ERLOTINIB
     Indication: LUNG ADENOCARCINOMA
     Dosage: 150MG
     Route: 048
     Dates: start: 201712, end: 20200225

REACTIONS (6)
  - Demyelination [Not Recovered/Not Resolved]
  - Dysarthria [Not Recovered/Not Resolved]
  - Paresis [Not Recovered/Not Resolved]
  - Facial paralysis [Not Recovered/Not Resolved]
  - Dysphagia [Not Recovered/Not Resolved]
  - Cerebellar syndrome [Not Recovered/Not Resolved]

NARRATIVE: CASE EVENT DATE: 20200130
